FAERS Safety Report 8451800-2 (Version None)
Quarter: 2012Q2

REPORT INFORMATION
  Report Type: 
  Country: None (occurrence: None)
  Receive Date: 20120620
  Receipt Date: 20120606
  Transmission Date: 20120825
  Serious: Yes (Hospitalization)
  Sender: FDA-Public Use
  Company Number: TR-ROCHE-458065

PATIENT
  Age: 5 Year
  Sex: Female

DRUGS (1)
  1. ROCEPHIN [Suspect]
     Indication: PNEUMONIA
     Route: 065

REACTIONS (2)
  - RENAL FAILURE ACUTE [None]
  - ANAEMIA HAEMOLYTIC AUTOIMMUNE [None]
